FAERS Safety Report 8995860 (Version 3)
Quarter: 2013Q1

REPORT INFORMATION
  Report Type: Spontaneous
  Country: IT (occurrence: IT)
  Receive Date: 20130103
  Receipt Date: 20130215
  Transmission Date: 20140127
  Serious: Yes (Life-Threatening)
  Sender: FDA-Public Use
  Company Number: IT-BAXTER-2012BAX029453

PATIENT
  Age: 84 Year
  Sex: Male

DRUGS (3)
  1. KIOVIG [Suspect]
     Indication: MUSCULAR WEAKNESS
     Dosage: 22G/KG BODY WEIGHT
     Route: 042
     Dates: start: 20121221, end: 20121224
  2. KIOVIG [Suspect]
     Indication: OFF LABEL USE
  3. PYRIDOSTIGMINE BROMIDE [Concomitant]
     Indication: PRODUCT USED FOR UNKNOWN INDICATION
     Route: 048
     Dates: start: 20121220, end: 20121224

REACTIONS (3)
  - Hypoxia [Recovered/Resolved]
  - Bronchospasm [Recovered/Resolved]
  - Chills [Recovered/Resolved]
